FAERS Safety Report 4648562-3 (Version None)
Quarter: 2005Q2

REPORT INFORMATION
  Report Type: 
  Country: None (occurrence: None)
  Receive Date: 20050429
  Receipt Date: 20050422
  Transmission Date: 20051028
  Serious: Yes (Hospitalization)
  Sender: FDA-Public Use
  Company Number: US-JNJFOC-20050406385

PATIENT
  Sex: Female
  Weight: 63.5 kg

DRUGS (3)
  1. DURAGESIC [Suspect]
     Route: 062
     Dates: start: 20000101
  2. LORTAB [Concomitant]
     Route: 049
  3. LORTAB [Concomitant]
     Indication: PAIN
     Dosage: 7.5 MG, 0-4 IN 24 HOURS AS NEEDED, ORAL
     Route: 049

REACTIONS (1)
  - PERITONITIS [None]
